FAERS Safety Report 23769407 (Version 2)
Quarter: 2024Q2

REPORT INFORMATION
  Report Type: Spontaneous
  Country: GB (occurrence: GB)
  Receive Date: 20240422
  Receipt Date: 20240501
  Transmission Date: 20240715
  Serious: Yes (Other)
  Sender: FDA-Public Use
  Company Number: GB-PFIZER INC-17318

PATIENT
  Age: 51 Year
  Sex: Female

DRUGS (11)
  1. FLUOROURACIL [Interacting]
     Active Substance: FLUOROURACIL
     Indication: Breast cancer
     Dosage: 6 CYCLES
     Route: 065
  2. METHOTREXATE SODIUM [Interacting]
     Active Substance: METHOTREXATE SODIUM
     Indication: Breast cancer
     Dosage: 6 CYCLES
     Route: 065
  3. PAMIDRONATE DISODIUM [Interacting]
     Active Substance: PAMIDRONATE DISODIUM
     Indication: Metastases to bone
     Dosage: 11 CYCLES, FREQ: MONTHLY
     Route: 042
     Dates: start: 20020101
  4. ANASTROZOLE [Interacting]
     Active Substance: ANASTROZOLE
     Indication: Breast cancer
     Dosage: UNK
     Route: 048
  5. CLODRONATE DISODIUM [Interacting]
     Active Substance: CLODRONATE DISODIUM
     Indication: Metastases to bone
     Dosage: UNK
     Route: 048
     Dates: start: 20010401, end: 20020101
  6. CYCLOPHOSPHAMIDE [Interacting]
     Active Substance: CYCLOPHOSPHAMIDE
     Indication: Breast cancer
     Dosage: 6 CYCLES
     Route: 065
  7. EXEMESTANE [Interacting]
     Active Substance: EXEMESTANE
     Indication: Breast cancer
     Dosage: UNK
     Route: 065
  8. IBANDRONIC ACID [Interacting]
     Active Substance: IBANDRONIC ACID
     Indication: Metastases to bone
     Dosage: UNK
     Route: 048
     Dates: start: 20040801
  9. TAMOXIFEN [Interacting]
     Active Substance: TAMOXIFEN
     Indication: Breast cancer
     Dosage: UNK
     Route: 048
  10. ZOLEDRONIC ACID [Interacting]
     Active Substance: ZOLEDRONIC ACID
     Indication: Metastases to bone
     Dosage: FREQ: MONTHLY
     Route: 042
     Dates: start: 20021201
  11. UNSPECIFIED INGREDIENT [Concomitant]
     Active Substance: UNSPECIFIED INGREDIENT
     Indication: General anaesthesia
     Dosage: UNK
     Route: 065

REACTIONS (2)
  - Osteonecrosis of jaw [Not Recovered/Not Resolved]
  - Drug interaction [Not Recovered/Not Resolved]
